FAERS Safety Report 9630805 (Version 1)
Quarter: 2013Q4

REPORT INFORMATION
  Report Type: Spontaneous
  Country: US (occurrence: None)
  Receive Date: 20131015
  Receipt Date: 20131015
  Transmission Date: 20140711
  Serious: Yes (Hospitalization)
  Sender: FDA-Public Use
  Company Number: SYM-2013-11379

PATIENT
  Age: 60 Year
  Sex: Male

DRUGS (1)
  1. XENAZINE (TETRABENAZINE) (TABLET) (TETRABENAZINE) [Suspect]
     Indication: HUNTINGTON^S DISEASE
     Dosage: 2 IN 1 D
     Route: 048
     Dates: start: 20130422

REACTIONS (4)
  - Myocardial infarction [None]
  - Cardiac failure congestive [None]
  - Pneumonia [None]
  - Atrial flutter [None]
